FAERS Safety Report 4701274-X (Version None)
Quarter: 2005Q2

REPORT INFORMATION
  Report Type: 
  Country: None (occurrence: None)
  Receive Date: 20050624
  Receipt Date: 20050614
  Transmission Date: 20051028
  Serious: Yes (Hospitalization, Other)
  Sender: FDA-Public Use
  Company Number: 2005088115

PATIENT
  Age: 57 Year
  Sex: Male
  Weight: 74.8435 kg

DRUGS (3)
  1. LIPITOR [Suspect]
     Indication: BLOOD CHOLESTEROL INCREASED
     Dosage: (1 IN 1 D), ORAL
     Route: 048
     Dates: start: 20050101, end: 20050612
  2. ALL OTHER THERAPEUTIC PRODUCTS (ALL OTHER THERAPEUTIC PRODUCTS) [Concomitant]
  3. ALL OTHER THERAPEUTIC PRODUCTS (ALL OTHER THERAPEUTIC PRODUCTS) [Concomitant]

REACTIONS (14)
  - BLOOD POTASSIUM ABNORMAL [None]
  - CAROTID ARTERY OCCLUSION [None]
  - CIRCULATORY COLLAPSE [None]
  - HYPERHIDROSIS [None]
  - IATROGENIC INJURY [None]
  - IMPRISONMENT [None]
  - INJECTION SITE CALCIFICATION [None]
  - INJECTION SITE INFECTION [None]
  - INJECTION SITE REACTION [None]
  - MUSCLE STRAIN [None]
  - SCROTAL PAIN [None]
  - SYNCOPE [None]
  - VENOUS INJURY [None]
  - VENOUS OCCLUSION [None]
